FAERS Safety Report 23625885 (Version 2)
Quarter: 2024Q1

REPORT INFORMATION
  Report Type: Spontaneous
  Country: FR (occurrence: FR)
  Receive Date: 20240313
  Receipt Date: 20240320
  Transmission Date: 20240410
  Serious: Yes (Hospitalization, Other)
  Sender: FDA-Public Use
  Company Number: FR-ENDO PHARMACEUTICALS INC-2024-001297

PATIENT
  Age: 61 Year
  Sex: Male
  Weight: 82 kg

DRUGS (6)
  1. EDEX [Suspect]
     Active Substance: ALPROSTADIL
     Indication: Organic erectile dysfunction
     Dosage: UNK UNKNOWN, UNKNOWN (20 MCG/1 ML)
     Route: 017
     Dates: start: 20230201, end: 20230730
  2. EDEX [Suspect]
     Active Substance: ALPROSTADIL
     Indication: Organic erectile dysfunction
     Dosage: UNK UNKNOWN, UNKNOWN (20 MCG/1 ML)
     Route: 017
     Dates: start: 20230201, end: 20230730
  3. EDEX [Suspect]
     Active Substance: ALPROSTADIL
     Indication: Organic erectile dysfunction
     Dosage: UNK UNKNOWN, UNKNOWN (20 MCG/1 ML)
     Route: 017
     Dates: start: 20230201, end: 20230730
  4. EDEX [Suspect]
     Active Substance: ALPROSTADIL
     Indication: Organic erectile dysfunction
     Dosage: UNK UNKNOWN, UNKNOWN (20 MCG/1 ML)
     Route: 017
     Dates: start: 20230201, end: 20230730
  5. EDEX [Suspect]
     Active Substance: ALPROSTADIL
     Indication: Organic erectile dysfunction
     Dosage: UNK UNKNOWN, UNKNOWN (20 MCG/1 ML)
     Route: 017
     Dates: start: 20230201, end: 20230730
  6. METFORMIN HYDROCHLORIDE [Concomitant]
     Active Substance: METFORMIN HYDROCHLORIDE
     Indication: Product used for unknown indication
     Dosage: UNK UNKNOWN, UNKNOWN
     Route: 065

REACTIONS (1)
  - Cerebrovascular accident [Recovered/Resolved with Sequelae]

NARRATIVE: CASE EVENT DATE: 20231006
